FAERS Safety Report 8115916-2 (Version None)
Quarter: 2012Q1

REPORT INFORMATION
  Report Type: 
  Country: None (occurrence: None)
  Receive Date: 20120206
  Receipt Date: 20120125
  Transmission Date: 20120608
  Serious: Yes (Hospitalization)
  Sender: FDA-Public Use
  Company Number: IE-ROCHE-1036456

PATIENT
  Sex: Female

DRUGS (11)
  1. ALBUTEROL SULFATE AUTOHALER [Concomitant]
  2. FLUTICASONE PROPIONATE/SALMETEROL [Concomitant]
  3. SPIRIVA [Concomitant]
  4. COMBIVENT [Concomitant]
  5. THEOPHYLLINE [Concomitant]
  6. NASONEX [Concomitant]
  7. SINGULAIR [Concomitant]
  8. DELTACORTRIL [Concomitant]
  9. XOLAIR [Suspect]
     Indication: ASTHMA
     Dates: start: 20110930
  10. FLUTICASONE PROPIONATE [Concomitant]
  11. OMEPRAZOLE [Concomitant]

REACTIONS (3)
  - INFLUENZA LIKE ILLNESS [None]
  - ASTHMA [None]
  - HEADACHE [None]
